FAERS Safety Report 10313264 (Version 3)
Quarter: 2014Q3

REPORT INFORMATION
  Report Type: Spontaneous
  Country: US (occurrence: None)
  Receive Date: 20140715
  Receipt Date: 20140902
  Transmission Date: 20150326
  Serious: Yes (Death, Hospitalization, Other)
  Sender: FDA-Public Use
  Company Number: UNT-2014-003534

PATIENT
  Age: 67 Year
  Sex: Female
  Weight: 66.2 kg

DRUGS (3)
  1. REMODULIN [Suspect]
     Active Substance: TREPROSTINIL
     Indication: PULMONARY ARTERIAL HYPERTENSION
     Dosage: CONTINUING
     Route: 041
     Dates: start: 20101030, end: 20140629
  2. TRACLEER [Concomitant]
     Active Substance: BOSENTAN\BOSENTAN MONOHYDRATE
  3. SILDENAFIL (SILDENAFIL) [Concomitant]
     Active Substance: SILDENAFIL

REACTIONS (7)
  - Cardiomegaly [None]
  - Fluid overload [None]
  - Respiratory failure [None]
  - Cardiac failure congestive [None]
  - Death [None]
  - Hypoxia [None]
  - Pulmonary arterial hypertension [None]

NARRATIVE: CASE EVENT DATE: 20140625
